FAERS Safety Report 9599008 (Version 1)
Quarter: 2013Q4

REPORT INFORMATION
  Report Type: Spontaneous
  Country: US (occurrence: US)
  Receive Date: 20131004
  Receipt Date: 20131004
  Transmission Date: 20140711
  Serious: No
  Sender: FDA-Public Use
  Company Number: US-AMGEN-USASP2013027329

PATIENT
  Age: 37 Year
  Sex: Female

DRUGS (6)
  1. ENBREL [Suspect]
     Indication: PRODUCT USED FOR UNKNOWN INDICATION
     Dosage: 50 MG, QWK
  2. VITAMIN D                          /00107901/ [Concomitant]
     Dosage: 1000 UNIT, UNK
  3. VITAMIN B12                        /00056201/ [Concomitant]
     Dosage: 1000 CR, UNK
  4. MAGNESIUM [Concomitant]
     Dosage: 500 MG, UNK
  5. LEVOXYL [Concomitant]
     Dosage: 112 MUG, UNK
  6. CALCIUM W/MINERALS/VITAMIN D NOS [Concomitant]
     Dosage: UNK

REACTIONS (2)
  - Lower respiratory tract infection [Unknown]
  - Nasopharyngitis [Unknown]
